FAERS Safety Report 17715655 (Version 1)
Quarter: 2020Q2

REPORT INFORMATION
  Report Type: Spontaneous
  Country: US (occurrence: US)
  Receive Date: 20200427
  Receipt Date: 20200427
  Transmission Date: 20200714
  Serious: No
  Sender: FDA-Public Use
  Company Number: NVSC2020US109894

PATIENT
  Sex: Male

DRUGS (2)
  1. BUPROPION. [Suspect]
     Active Substance: BUPROPION
     Indication: PRODUCT USED FOR UNKNOWN INDICATION
     Dosage: 150 MG
     Route: 065
  2. BUPROPION. [Suspect]
     Active Substance: BUPROPION
     Dosage: 200 UNK
     Route: 065

REACTIONS (3)
  - Mood altered [Unknown]
  - Incorrect dose administered [Unknown]
  - Drug ineffective [Unknown]
